FAERS Safety Report 18670430 (Version 2)
Quarter: 2021Q1

REPORT INFORMATION
  Report Type: Spontaneous
  Country: US (occurrence: US)
  Receive Date: 20201228
  Receipt Date: 20210219
  Transmission Date: 20210419
  Serious: No
  Sender: FDA-Public Use
  Company Number: US-VERTEX PHARMACEUTICALS-2020-025196

PATIENT
  Sex: Male

DRUGS (5)
  1. TRIKAFTA [Suspect]
     Active Substance: ELEXACAFTOR\IVACAFTOR\TEZACAFTOR
     Dosage: 2 TAB (ELEXA 100 MG/ TEZA 50 MG/ IVA 75 MG) AM, 1 TAB (IVA 75 MG) PM; BID
     Route: 048
     Dates: start: 20210119, end: 20210208
  2. TRIKAFTA [Suspect]
     Active Substance: ELEXACAFTOR\IVACAFTOR\TEZACAFTOR
     Dosage: 2 ORANGE TABS(100MG ELEXACAFTOR/50MG TEZACAFTOR/75MG IVACAFTOR)AM;1 BLUE TAB(150MG IVACAFTOR)PM
     Route: 048
     Dates: start: 2020, end: 2020
  3. LEVAQUIN [Concomitant]
     Active Substance: LEVOFLOXACIN
  4. TRIKAFTA [Suspect]
     Active Substance: ELEXACAFTOR\IVACAFTOR\TEZACAFTOR
     Indication: CYSTIC FIBROSIS
     Dosage: 2 ORANGE TABS(100MG ELEXACAFTOR/50MG TEZACAFTOR/75MG IVACAFTOR)AM;1 BLUE TAB(150MG IVACAFTOR)PM
     Route: 048
     Dates: start: 201912, end: 2020
  5. VRAYLAR [Concomitant]
     Active Substance: CARIPRAZINE
     Dosage: UNK

REACTIONS (2)
  - Liver function test increased [Not Recovered/Not Resolved]
  - Mental disorder [Unknown]

NARRATIVE: CASE EVENT DATE: 2020
